FAERS Safety Report 22066935 (Version 1)
Quarter: 2023Q1

REPORT INFORMATION
  Report Type: Spontaneous
  Country: CN (occurrence: CN)
  Receive Date: 20230306
  Receipt Date: 20230306
  Transmission Date: 20230417
  Serious: Yes (Other)
  Sender: FDA-Public Use
  Company Number: None

PATIENT
  Age: 52 Year
  Sex: Female

DRUGS (4)
  1. CYCLOPHOSPHAMIDE [Suspect]
     Active Substance: CYCLOPHOSPHAMIDE
     Indication: Breast cancer female
     Dosage: 0.9 G, ONCE DAILY, DAY 1 OF 21 DAY CYCLE
     Route: 041
     Dates: start: 20230109, end: 20230109
  2. EPIRUBICIN HYDROCHLORIDE [Suspect]
     Active Substance: EPIRUBICIN HYDROCHLORIDE
     Indication: Breast cancer female
     Dosage: 60 MG, QD, DAY 1 OF 21 DAY CYCLE
     Route: 041
     Dates: start: 20230109, end: 20230109
  3. EPIRUBICIN HYDROCHLORIDE [Suspect]
     Active Substance: EPIRUBICIN HYDROCHLORIDE
     Dosage: 70 MG, QD,DAY 2 OF 21 DAY CYCLE
     Route: 041
     Dates: start: 20230110, end: 20230110
  4. SODIUM CHLORIDE [Concomitant]
     Active Substance: SODIUM CHLORIDE
     Indication: Electrolyte imbalance
     Dosage: 100 ML, ONCE DAILY
     Route: 041
     Dates: start: 20230109, end: 20230109

REACTIONS (7)
  - Gastrointestinal disorder [Recovering/Resolving]
  - Nausea [Recovering/Resolving]
  - Vomiting [Recovering/Resolving]
  - Gastrooesophageal reflux disease [Recovering/Resolving]
  - Dyspepsia [Recovering/Resolving]
  - Decreased appetite [Recovering/Resolving]
  - Asthenia [Recovering/Resolving]

NARRATIVE: CASE EVENT DATE: 20230111
